FAERS Safety Report 10365654 (Version 1)
Quarter: 2014Q3

REPORT INFORMATION
  Report Type: Spontaneous
  Country: US (occurrence: None)
  Receive Date: 20140804
  Receipt Date: 20140804
  Transmission Date: 20150326
  Serious: Yes (Other)
  Sender: FDA-Public Use
  Company Number: 2014-US-007339

PATIENT
  Age: 38 Year
  Sex: Female

DRUGS (1)
  1. XYREM [Suspect]
     Active Substance: SODIUM OXYBATE
     Indication: NARCOLEPSY
     Route: 048
     Dates: start: 201104, end: 2011

REACTIONS (4)
  - Complication of pregnancy [None]
  - Malaise [None]
  - Maternal drugs affecting foetus [None]
  - Abortion spontaneous [None]
